FAERS Safety Report 13445659 (Version 1)
Quarter: 2017Q2

REPORT INFORMATION
  Report Type: Spontaneous
  Country: IT (occurrence: IT)
  Receive Date: 20170415
  Receipt Date: 20170415
  Transmission Date: 20170830
  Serious: Yes (Other)
  Sender: FDA-Public Use
  Company Number: IT-MYLANLABS-2017M1022947

PATIENT

DRUGS (2)
  1. CISPLATIN. [Suspect]
     Active Substance: CISPLATIN
     Indication: THYROID CANCER
     Dosage: UNK UNK, CYCLE
  2. TAXOTERE [Suspect]
     Active Substance: DOCETAXEL
     Indication: THYROID CANCER
     Dosage: UNK UNK, CYCLE

REACTIONS (5)
  - Metastases to kidney [Recovered/Resolved]
  - Metastases to bone [Recovered/Resolved]
  - Metastases to lung [Recovered/Resolved]
  - Drug ineffective [Recovered/Resolved]
  - Malignant neoplasm progression [Recovered/Resolved]
